FAERS Safety Report 5340486-1 (Version None)
Quarter: 2007Q2

REPORT INFORMATION
  Report Type: 
  Country: None (occurrence: None)
  Receive Date: 20070405
  Receipt Date: 20061215
  Transmission Date: 20071010
  Serious: Yes (Other)
  Sender: FDA-Public Use
  Company Number: US200612000369

PATIENT
  Age: 47 Year
  Sex: Female
  Weight: 85.3 kg

DRUGS (1)
  1. CYMBALTA [Suspect]
     Indication: PAIN
     Dosage: 60 MG, DAILY (1/D)

REACTIONS (1)
  - STEVENS-JOHNSON SYNDROME [None]
